FAERS Safety Report 20232292 (Version 1)
Quarter: 2021Q4

REPORT INFORMATION
  Report Type: Spontaneous
  Country: US (occurrence: None)
  Receive Date: 20211224
  Receipt Date: 20211224
  Transmission Date: 20220303
  Serious: Yes (Death)
  Sender: FDA-Public Use
  Company Number: None

PATIENT
  Age: 72 Year
  Sex: Female
  Weight: 65.25 kg

DRUGS (22)
  1. CAPECITABINE [Suspect]
     Active Substance: CAPECITABINE
     Indication: Breast cancer
     Dosage: OTHER FREQUENCY : BID FOR 14/21 DAYS;?
     Route: 048
     Dates: start: 20211130, end: 20211223
  2. Acetaminophen 325mg [Concomitant]
  3. ATORVASTATIN [Concomitant]
     Active Substance: ATORVASTATIN
  4. Biotin 2500mcg [Concomitant]
  5. CARVEDILOL [Concomitant]
     Active Substance: CARVEDILOL
  6. CHLORTHALIDONE [Concomitant]
     Active Substance: CHLORTHALIDONE
  7. CLOPIDOGREL [Concomitant]
     Active Substance: CLOPIDOGREL BISULFATE
  8. DOCUSATE [Concomitant]
     Active Substance: DOCUSATE
  9. GABAPENTIN [Concomitant]
     Active Substance: GABAPENTIN
  10. Glyburide 3mg [Concomitant]
  11. Norco 5-325mg [Concomitant]
  12. HYDROXYZINE [Concomitant]
     Active Substance: HYDROXYZINE HYDROCHLORIDE
  13. Isosorbide mononitrate ER 30mg [Concomitant]
  14. LETROZOLE [Concomitant]
     Active Substance: LETROZOLE
  15. LISINOPRIL [Concomitant]
     Active Substance: LISINOPRIL
  16. Nitroglycerin 0.4mg [Concomitant]
  17. Sennosides 8.6mg [Concomitant]
  18. Janumet 50-1000mg [Concomitant]
  19. IBUPROFEN [Concomitant]
     Active Substance: IBUPROFEN
  20. Amlodipine-Benazepril 5-10mg [Concomitant]
  21. GLIPIZIDE ER [Concomitant]
     Active Substance: GLIPIZIDE
  22. PANTOPRAZOLE SODIUM [Concomitant]
     Active Substance: PANTOPRAZOLE SODIUM

REACTIONS (1)
  - Death [None]

NARRATIVE: CASE EVENT DATE: 20211224
